FAERS Safety Report 14223420 (Version 1)
Quarter: 2017Q4

REPORT INFORMATION
  Report Type: Spontaneous
  Country: ES (occurrence: ES)
  Receive Date: 20171124
  Receipt Date: 20171124
  Transmission Date: 20180321
  Serious: Yes (Hospitalization, Other)
  Sender: FDA-Public Use
  Company Number: PHHY2017ES168489

PATIENT
  Sex: Female

DRUGS (2)
  1. TRILEPTAL [Suspect]
     Active Substance: OXCARBAZEPINE
     Indication: PAIN
     Dosage: UNK
     Route: 065
  2. FUROSEMIDE. [Concomitant]
     Active Substance: FUROSEMIDE
     Indication: PRODUCT USED FOR UNKNOWN INDICATION
     Dosage: UNK
     Route: 065

REACTIONS (41)
  - Gastrooesophageal sphincter insufficiency [Unknown]
  - Skin disorder [Unknown]
  - Pyrexia [Unknown]
  - Abdominal pain upper [Unknown]
  - Hypersensitivity [Unknown]
  - Somatic symptom disorder [Unknown]
  - Pain [Unknown]
  - Facial paralysis [Unknown]
  - Asphyxia [Unknown]
  - Sepsis [Unknown]
  - Visual impairment [Unknown]
  - Purpura [Unknown]
  - Insomnia [Unknown]
  - Off label use [Unknown]
  - Angiopathy [Unknown]
  - Extravasation [Unknown]
  - Splenomegaly [Unknown]
  - Depression [Unknown]
  - Lacunar stroke [Unknown]
  - Dyspepsia [Unknown]
  - Abdominal distension [Unknown]
  - Feeling abnormal [Unknown]
  - Varicose vein [Unknown]
  - Scar [Unknown]
  - Malaise [Unknown]
  - Ischaemic stroke [Unknown]
  - Loss of consciousness [Unknown]
  - Hepatitis [Unknown]
  - Sight disability [Unknown]
  - Aphasia [Unknown]
  - Nervous system disorder [Unknown]
  - Fall [Unknown]
  - Limb discomfort [Unknown]
  - Lymphadenopathy [Unknown]
  - Eating disorder [Unknown]
  - Dysphagia [Unknown]
  - Eye disorder [Unknown]
  - Spinal pain [Unknown]
  - Vomiting [Unknown]
  - Headache [Unknown]
  - Toothache [Unknown]
